FAERS Safety Report 5055236-6 (Version None)
Quarter: 2006Q3

REPORT INFORMATION
  Report Type: 
  Country: None (occurrence: None)
  Receive Date: 20060714
  Receipt Date: 20060703
  Transmission Date: 20061208
  Serious: Yes (Hospitalization)
  Sender: FDA-Public Use
  Company Number: 2006084228

PATIENT
  Age: 20 Year
  Sex: Female

DRUGS (6)
  1. XANAX [Suspect]
     Indication: PSYCHOTIC DISORDER
     Dosage: 1.5 MG (0.5 MG, 3 IN 1 D), ORAL
     Route: 048
  2. ATARAX [Suspect]
     Indication: PSYCHOTIC DISORDER
     Dosage: 200 MG (50 MG,4 IN 1 D), ORAL
     Route: 048
  3. ZYPREXA [Suspect]
     Indication: PSYCHOTIC DISORDER
     Dosage: 1 DOSE FORM (1 IN 1 D), ORAL
     Route: 048
     Dates: start: 20060512
  4. ABILIFY [Suspect]
     Indication: PSYCHOTIC DISORDER
     Dosage: 1 DOSE FORM (1 IN 1 D), ORAL
     Route: 048
     Dates: start: 20060415
  5. TERCIAN                   (CYAMEMAZINE) [Suspect]
     Indication: PSYCHOTIC DISORDER
     Dosage: 40MG/ML, 100 DOSES FORM (4 IN 1 D), ORAL
     Route: 048
  6. DEPAKOTE [Suspect]
     Indication: PSYCHOTIC DISORDER
     Dosage: 1.5 GRAM (500 MG, 3 IN 1 D), ORAL
     Route: 048

REACTIONS (3)
  - BLISTER [None]
  - PHOTODERMATOSIS [None]
  - PHOTOSENSITIVITY REACTION [None]
